FAERS Safety Report 4816807-2 (Version None)
Quarter: 2005Q4

REPORT INFORMATION
  Report Type: 
  Country: None (occurrence: None)
  Receive Date: 20051031
  Receipt Date: 20051031
  Transmission Date: 20060501
  Serious: Yes (Other)
  Sender: FDA-Public Use
  Company Number: None

PATIENT
  Age: 44 Year
  Sex: Male
  Weight: 77.1569 kg

DRUGS (18)
  1. KALETRA [Suspect]
     Indication: HIV INFECTION
     Dosage: 3 TABS BID PO
     Route: 048
     Dates: start: 20050803, end: 20051010
  2. ZIDOVUDINE [Suspect]
     Indication: HIV INFECTION
     Dosage: 300 MG QD PO
     Route: 048
     Dates: start: 20050803, end: 20051010
  3. INVIRASE [Suspect]
     Indication: HIV INFECTION
     Dosage: 500 MG 2TABS BID PO
     Route: 048
     Dates: start: 20050803, end: 20051010
  4. VIDEX EC [Suspect]
     Indication: HIV INFECTION
     Dosage: 250 MG QD PO
     Route: 048
     Dates: start: 20050803, end: 20051010
  5. ALLEGRA [Concomitant]
  6. AMBIEN [Concomitant]
  7. ACULAR [Concomitant]
  8. ALPHAGAN [Concomitant]
  9. CLONAZEPAM [Concomitant]
  10. COSOPT [Concomitant]
  11. HYDROCHLOROTHIAZIDE [Concomitant]
  12. KETOROLAC TROMETHAMINE [Concomitant]
  13. LUMIGAN [Concomitant]
  14. METHADONE [Concomitant]
  15. MOTRIN [Concomitant]
  16. SYNTHROID [Concomitant]
  17. TYLENOL W/ CODEINE [Concomitant]
  18. ZOVIRAX [Concomitant]

REACTIONS (2)
  - CD4 LYMPHOCYTES DECREASED [None]
  - ELECTROCARDIOGRAM QT CORRECTED INTERVAL PROLONGED [None]
